FAERS Safety Report 18817789 (Version 1)
Quarter: 2021Q1

REPORT INFORMATION
  Report Type: Spontaneous
  Country: CN (occurrence: CN)
  Receive Date: 20210201
  Receipt Date: 20210201
  Transmission Date: 20210419
  Serious: Yes (Death, Other)
  Sender: FDA-Public Use
  Company Number: CN-PFIZER INC-2021064421

PATIENT
  Age: 35 Year
  Sex: Female

DRUGS (4)
  1. OMEPRAZOLE. [Suspect]
     Active Substance: OMEPRAZOLE
     Indication: ECTOPIC PREGNANCY
     Dosage: 40 MG, 1X/DAY
     Route: 041
     Dates: start: 20150628, end: 20150703
  2. METHOTREXATE. [Suspect]
     Active Substance: METHOTREXATE
     Dosage: 20 MG, 1X/DAY
     Route: 030
     Dates: start: 20150629, end: 20150629
  3. METHOTREXATE. [Suspect]
     Active Substance: METHOTREXATE
     Indication: ECTOPIC PREGNANCY
     Dosage: 20 MG, 1X/DAY
     Route: 030
     Dates: start: 20150626, end: 20150627
  4. SODIUM CHLORIDE. [Concomitant]
     Active Substance: SODIUM CHLORIDE
     Dosage: 250 ML, 1X/DAY
     Route: 041
     Dates: start: 20150628, end: 20150703

REACTIONS (18)
  - Vomiting [Unknown]
  - Inadequate diet [Unknown]
  - Dry throat [Unknown]
  - Fatigue [Unknown]
  - Myelosuppression [Fatal]
  - Back pain [Unknown]
  - Odynophagia [Unknown]
  - Oropharyngeal pain [Not Recovered/Not Resolved]
  - Pyrexia [Unknown]
  - Decreased appetite [Unknown]
  - Drug hypersensitivity [Unknown]
  - Mouth ulceration [Not Recovered/Not Resolved]
  - Condition aggravated [Unknown]
  - Depressed mood [Unknown]
  - Off label use [Unknown]
  - Rash maculo-papular [Unknown]
  - Nausea [Unknown]
  - Dizziness [Unknown]

NARRATIVE: CASE EVENT DATE: 20150626
